FAERS Safety Report 9269955 (Version 1)
Quarter: 2013Q2

REPORT INFORMATION
  Report Type: Report from Study
  Country: CA (occurrence: CA)
  Receive Date: 20130503
  Receipt Date: 20130503
  Transmission Date: 20140414
  Serious: Yes (Other)
  Sender: FDA-Public Use
  Company Number: CA-JNJFOC-20130416496

PATIENT
  Age: 52 Year
  Sex: Female
  Weight: 76 kg

DRUGS (7)
  1. REMICADE [Suspect]
     Indication: ANKYLOSING SPONDYLITIS
     Route: 042
  2. GABAPENTIN [Concomitant]
     Route: 065
  3. ELAVIL [Concomitant]
     Route: 065
  4. GLUCOSAMINE [Concomitant]
     Route: 065
  5. CODEINE [Concomitant]
     Route: 065
  6. MELOXICAM [Concomitant]
     Route: 065
  7. ZANTAC [Concomitant]
     Route: 065

REACTIONS (1)
  - Arthritis [Not Recovered/Not Resolved]
